FAERS Safety Report 12154798 (Version 5)
Quarter: 2016Q2

REPORT INFORMATION
  Report Type: Spontaneous
  Country: ES (occurrence: ES)
  Receive Date: 20160307
  Receipt Date: 20160513
  Transmission Date: 20160815
  Serious: Yes (Other)
  Sender: FDA-Public Use
  Company Number: ES-PFIZER INC-2016143445

PATIENT
  Age: 81 Year
  Sex: Female

DRUGS (9)
  1. STATIN /00036501/ [Suspect]
     Active Substance: NYSTATIN
     Dosage: UNK
     Route: 065
     Dates: end: 201512
  2. ELIQUIS [Suspect]
     Active Substance: APIXABAN
     Indication: CEREBROVASCULAR ACCIDENT PROPHYLAXIS
     Dosage: 5 MG, BID
     Route: 048
     Dates: start: 20141016, end: 20160216
  3. HYDROCHLOROTHIAZIDE. [Suspect]
     Active Substance: HYDROCHLOROTHIAZIDE
     Dosage: UNK
     Route: 065
  4. OLMESARTAN MEDOXOMIL. [Suspect]
     Active Substance: OLMESARTAN MEDOXOMIL
     Dosage: 1 DF, QD (1DF=40UNIT NOS)
     Route: 065
  5. AMIODARONE [Suspect]
     Active Substance: AMIODARONE
     Dosage: 1 DF, UNK (5 DAYS PER WEEK)
     Route: 065
     Dates: start: 2013, end: 20151216
  6. BISOPROLOL [Suspect]
     Active Substance: BISOPROLOL
     Dosage: 1 DF, QD (1 DF= 2.5 UNIT NOS)
     Route: 065
     Dates: start: 20151216
  7. ATORVASTATIN CALCIUM. [Suspect]
     Active Substance: ATORVASTATIN CALCIUM
     Dosage: 20 MG, QD
     Route: 065
     Dates: start: 2012, end: 20151216
  8. ELIQUIS [Suspect]
     Active Substance: APIXABAN
     Dosage: UNK
     Route: 048
     Dates: start: 20160427
  9. AMLODIPINE BESILATE [Suspect]
     Active Substance: AMLODIPINE BESYLATE
     Dosage: 1 DF, QD (1 DF=5 UNIT NOS)
     Route: 065

REACTIONS (3)
  - Bile duct stone [Unknown]
  - Transaminases increased [Recovering/Resolving]
  - Endoscopic retrograde cholangiopancreatography [Unknown]

NARRATIVE: CASE EVENT DATE: 201512
